FAERS Safety Report 4474938-3 (Version None)
Quarter: 2004Q4

REPORT INFORMATION
  Report Type: 
  Country: None (occurrence: None)
  Receive Date: 20041014
  Receipt Date: 20041007
  Transmission Date: 20050328
  Serious: Yes (Life-Threatening)
  Sender: FDA-Public Use
  Company Number: CO-MERCK-0410COL00012

PATIENT
  Sex: Female

DRUGS (3)
  1. CAFIASPIRINA [Suspect]
     Route: 065
  2. CLOPIDOGREL BISULFATE [Suspect]
     Route: 065
  3. VIOXX [Suspect]
     Indication: ARTHRITIS
     Route: 048

REACTIONS (3)
  - CEREBROVASCULAR ACCIDENT [None]
  - GASTROINTESTINAL HAEMORRHAGE [None]
  - MYOCARDIAL INFARCTION [None]
